FAERS Safety Report 4788645-0 (Version None)
Quarter: 2005Q4

REPORT INFORMATION
  Report Type: 
  Country: None (occurrence: None)
  Receive Date: 20051005
  Receipt Date: 20050926
  Transmission Date: 20060501
  Serious: Yes (Hospitalization)
  Sender: FDA-Public Use
  Company Number: FR-GLAXOSMITHKLINE-B0395172A

PATIENT
  Age: 42 Year
  Sex: Male

DRUGS (4)
  1. EPIVIR [Suspect]
     Indication: HIV INFECTION
     Dosage: 300MG PER DAY
     Route: 048
     Dates: end: 20050501
  2. VIDEX [Suspect]
     Indication: HIV INFECTION
     Dosage: 400MG PER DAY
     Route: 048
     Dates: end: 20050501
  3. VIREAD [Suspect]
     Indication: HIV INFECTION
     Dosage: 245MG PER DAY
     Route: 048
     Dates: end: 20050501
  4. TAHOR [Suspect]
     Dosage: 1UNIT PER DAY
     Route: 048
     Dates: end: 20050501

REACTIONS (3)
  - ARTHRALGIA [None]
  - ASTHENIA [None]
  - MYALGIA [None]
